FAERS Safety Report 25290892 (Version 3)
Quarter: 2025Q3

REPORT INFORMATION
  Report Type: Spontaneous
  Country: US (occurrence: US)
  Receive Date: 20250510
  Receipt Date: 20250805
  Transmission Date: 20251020
  Serious: No
  Sender: SANOFI AVENTIS
  Company Number: US-SA-2025SA118970

PATIENT
  Age: 72 Year
  Sex: Male

DRUGS (11)
  1. DUPIXENT [Suspect]
     Active Substance: DUPILUMAB
     Indication: Hypoxia
     Dosage: 300 MG, QOW
     Route: 058
     Dates: start: 20250419
  2. ALBUTEROL SULFATE [Concomitant]
     Active Substance: ALBUTEROL SULFATE
  3. LORAZEPAM [Concomitant]
     Active Substance: LORAZEPAM
  4. PREDNISOLONE [Concomitant]
     Active Substance: PREDNISOLONE
  5. PREGABALIN [Concomitant]
     Active Substance: PREGABALIN
  6. MONTELUKAST [Concomitant]
     Active Substance: MONTELUKAST
  7. LIPITOR [Concomitant]
     Active Substance: ATORVASTATIN CALCIUM
  8. TAMSULOSIN HYDROCHLORIDE [Concomitant]
     Active Substance: TAMSULOSIN HYDROCHLORIDE
  9. OMEPRAZOLE [Concomitant]
     Active Substance: OMEPRAZOLE
  10. OXYCODONE HYDROCHLORIDE [Concomitant]
     Active Substance: OXYCODONE HYDROCHLORIDE
  11. ASPIRIN [Concomitant]
     Active Substance: ASPIRIN

REACTIONS (7)
  - Tremor [Unknown]
  - Asthenia [Unknown]
  - Sciatica [Unknown]
  - Rash erythematous [Not Recovered/Not Resolved]
  - Injection site swelling [Not Recovered/Not Resolved]
  - Product use in unapproved indication [Unknown]
  - Inappropriate schedule of product administration [Unknown]

NARRATIVE: CASE EVENT DATE: 20250419
